FAERS Safety Report 24681269 (Version 1)
Quarter: 2024Q4

REPORT INFORMATION
  Report Type: Report from Study
  Country: US (occurrence: US)
  Receive Date: 20241129
  Receipt Date: 20241129
  Transmission Date: 20250115
  Serious: Yes (Hospitalization)
  Sender: HLS THERAPEUTICS
  Company Number: US-HLS-202401531

PATIENT

DRUGS (1)
  1. CLOZAPINE [Suspect]
     Active Substance: CLOZAPINE
     Indication: Product used for unknown indication
     Dosage: 200 MG BID
     Route: 065

REACTIONS (2)
  - Treatment noncompliance [Unknown]
  - Psychotic disorder [Unknown]

NARRATIVE: CASE EVENT DATE: 20241112
